FAERS Safety Report 13114067 (Version 4)
Quarter: 2017Q2

REPORT INFORMATION
  Report Type: Spontaneous
  Country: IT (occurrence: IT)
  Receive Date: 20170113
  Receipt Date: 20170502
  Transmission Date: 20170830
  Serious: Yes (Other)
  Sender: FDA-Public Use
  Company Number: IT-BRISTOL-MYERS SQUIBB COMPANY-BMS-2016-112721

PATIENT
  Age: 78 Year
  Sex: Male

DRUGS (1)
  1. METFORMIN HYDROCHLORIDE. [Suspect]
     Active Substance: METFORMIN HYDROCHLORIDE
     Indication: PRODUCT USED FOR UNKNOWN INDICATION
     Dosage: 3000 MG, QD
     Route: 065

REACTIONS (6)
  - Dehydration [Recovered/Resolved]
  - Haemodialysis [Unknown]
  - Lactic acidosis [Recovered/Resolved]
  - Prescribed overdose [Unknown]
  - Hypothermia [Recovered/Resolved]
  - Acute kidney injury [Recovered/Resolved]
